FAERS Safety Report 18637229 (Version 1)
Quarter: 2020Q4

REPORT INFORMATION
  Report Type: Spontaneous
  Country: BR (occurrence: BR)
  Receive Date: 20201218
  Receipt Date: 20201218
  Transmission Date: 20210114
  Serious: Yes (Other)
  Sender: FDA-Public Use
  Company Number: BR-GLAXOSMITHKLINE-BR2020AMR247408

PATIENT
  Age: 69 Year
  Sex: Male
  Weight: 82 kg

DRUGS (9)
  1. ACITRETIN. [Suspect]
     Active Substance: ACITRETIN
     Indication: PSORIASIS
     Dosage: UNK
     Route: 048
  2. ACITRETIN. [Suspect]
     Active Substance: ACITRETIN
     Indication: PSORIATIC ARTHROPATHY
  3. CALCIPOTRIOL [Suspect]
     Active Substance: CALCIPOTRIENE
     Indication: PRODUCT USED FOR UNKNOWN INDICATION
     Dosage: UNK
  4. REMSIMA [Suspect]
     Active Substance: INFLIXIMAB
     Indication: PSORIASIS
     Dosage: 100 MG, 2 AMPOULE EVERY 8 WEEKS
     Route: 042
  5. REMSIMA [Suspect]
     Active Substance: INFLIXIMAB
     Indication: PSORIATIC ARTHROPATHY
     Dosage: 100 MG, 1 AMPOULE EVERY 8 WEEKS
     Route: 042
  6. METHOTREXATE. [Suspect]
     Active Substance: METHOTREXATE
     Indication: PSORIASIS
     Dosage: UNK
     Route: 048
  7. COAL TAR. [Suspect]
     Active Substance: COAL TAR
     Indication: PRODUCT USED FOR UNKNOWN INDICATION
     Dosage: UNK
  8. METHOTREXATE. [Suspect]
     Active Substance: METHOTREXATE
     Indication: PSORIATIC ARTHROPATHY
  9. BENZATHINE PENICILLIN [Suspect]
     Active Substance: PENICILLIN G BENZATHINE
     Indication: ERYSIPELAS
     Dosage: UNK
     Route: 030

REACTIONS (10)
  - Road traffic accident [Unknown]
  - Sensory disturbance [Unknown]
  - Injury [Unknown]
  - Drug ineffective [Unknown]
  - Thermal burn [Unknown]
  - Haematoma [Unknown]
  - Upper limb fracture [Unknown]
  - Erysipelas [Not Recovered/Not Resolved]
  - Inflammation [Unknown]
  - Ligament sprain [Unknown]
